FAERS Safety Report 4380978-5 (Version None)
Quarter: 2004Q2

REPORT INFORMATION
  Report Type: 
  Country: None (occurrence: None)
  Receive Date: 20040614
  Receipt Date: 20040608
  Transmission Date: 20050107
  Serious: Yes (Hospitalization)
  Sender: FDA-Public Use
  Company Number: GBWYE816310JUN04

PATIENT
  Age: 39 Year
  Sex: Female

DRUGS (2)
  1. EFFEXOR [Suspect]
     Indication: DEPRESSION
     Dosage: 75MG FREQUENCY,ORAL
     Route: 048
     Dates: start: 20040315, end: 20040401
  2. CITALOPRAM [Suspect]
     Indication: DEPRESSION
     Dosage: 20MG FREQUENCY, ORAL
     Route: 048
     Dates: start: 20040130, end: 20040315

REACTIONS (2)
  - DRUG EXPOSURE DURING PREGNANCY [None]
  - ECTOPIC PREGNANCY [None]
